FAERS Safety Report 24444164 (Version 2)
Quarter: 2024Q4

REPORT INFORMATION
  Report Type: Report from Study
  Country: US (occurrence: US)
  Receive Date: 20241016
  Receipt Date: 20241017
  Transmission Date: 20250114
  Serious: No
  Sender: ROCHE
  Company Number: US-ROCHE-2565187

PATIENT
  Age: 19 Year
  Sex: Female

DRUGS (4)
  1. RITUXAN [Suspect]
     Active Substance: RITUXIMAB
     Indication: Multiple sclerosis
     Dosage: 1000MG IN NS IV SOLUTION Q 6 MO X 1 INFUSION PER?1000 MG INFUSED 70 MG/HR FOR FIRST HOUR INCREASE RA
     Route: 042
     Dates: start: 20210128
  2. RITUXAN [Suspect]
     Active Substance: RITUXIMAB
     Indication: Neuromyelitis optica spectrum disorder
  3. RITUXAN [Suspect]
     Active Substance: RITUXIMAB
     Indication: Demyelination
  4. RITUXAN [Suspect]
     Active Substance: RITUXIMAB
     Indication: Drug therapy

REACTIONS (2)
  - Off label use [Unknown]
  - No adverse event [Unknown]
